FAERS Safety Report 7416082-9 (Version None)
Quarter: 2011Q2

REPORT INFORMATION
  Report Type: 
  Country: None (occurrence: None)
  Receive Date: 20110414
  Receipt Date: 20110404
  Transmission Date: 20111010
  Serious: Yes (Other)
  Sender: FDA-Public Use
  Company Number: JP-ROCHE-768940

PATIENT

DRUGS (3)
  1. PEGINTERFERON ALFA-2A [Suspect]
     Dosage: DRUG: PEGASYS
     Route: 058
  2. RIBAVIRIN [Suspect]
     Dosage: DRUG: COPEGUS, FREQUENCY: DAILY, DOSE: AS PER BODY WEIGHT
     Route: 048
  3. PEGINTERFERON ALFA-2B [Suspect]
     Dosage: DRUG: PEG-INTRON
     Route: 058

REACTIONS (4)
  - DRUG RASH WITH EOSINOPHILIA AND SYSTEMIC SYMPTOMS [None]
  - RETINOPATHY [None]
  - ARRHYTHMIA [None]
  - MENTAL DISORDER [None]
